FAERS Safety Report 9717002 (Version 1)
Quarter: 2013Q4

REPORT INFORMATION
  Report Type: Spontaneous
  Country: US (occurrence: US)
  Receive Date: 20131127
  Receipt Date: 20131127
  Transmission Date: 20140711
  Serious: No
  Sender: FDA-Public Use
  Company Number: US-GILEAD-2009-0020289

PATIENT
  Age: 54 Year
  Sex: Female
  Weight: 80.29 kg

DRUGS (6)
  1. LETAIRIS [Suspect]
     Indication: PULMONARY ARTERIAL HYPERTENSION
  2. TORSEMIDE [Concomitant]
  3. GLUCOPHAGE [Concomitant]
  4. ASA LOW DOSE [Concomitant]
  5. LIPITOR [Concomitant]
  6. TYLENOL [Concomitant]

REACTIONS (1)
  - Flushing [Unknown]
